FAERS Safety Report 6112066-1 (Version None)
Quarter: 2009Q1

REPORT INFORMATION
  Report Type: 
  Country: None (occurrence: None)
  Receive Date: 20090311
  Receipt Date: 20090226
  Transmission Date: 20090719
  Serious: Yes (Other)
  Sender: FDA-Public Use
  Company Number: TH-PFIZER INC-2009179240

PATIENT

DRUGS (3)
  1. ZOLOFT [Suspect]
     Indication: OBSESSIVE-COMPULSIVE DISORDER
     Route: 048
     Dates: start: 20090222
  2. SERETIDE [Concomitant]
     Route: 045
  3. MEIACT [Concomitant]

REACTIONS (3)
  - HYPOAESTHESIA [None]
  - MUSCLE SPASTICITY [None]
  - YAWNING [None]
